FAERS Safety Report 9818642 (Version 1)
Quarter: 2013Q4

REPORT INFORMATION
  Report Type: Spontaneous
  Country: US (occurrence: None)
  Receive Date: 20131223
  Receipt Date: 20131223
  Transmission Date: 20140711
  Serious: No
  Sender: FDA-Public Use
  Company Number: 222323

PATIENT
  Age: 49 Year
  Sex: Female

DRUGS (1)
  1. PICATO [Suspect]
     Indication: ACTINIC KERATOSIS
     Dosage: (1 IN 1 D),  TOPICAL
     Route: 061
     Dates: start: 20130609

REACTIONS (11)
  - Application site mass [None]
  - Application site erythema [None]
  - Application site warmth [None]
  - Application site pruritus [None]
  - Application site swelling [None]
  - Application site irritation [None]
  - Inappropriate schedule of drug administration [None]
  - Drug administered at inappropriate site [None]
  - Drug administration error [None]
  - Accidental overdose [None]
  - Incorrect drug administration duration [None]
